FAERS Safety Report 5669304-9 (Version None)
Quarter: 2008Q1

REPORT INFORMATION
  Report Type: 
  Country: None (occurrence: None)
  Receive Date: 20080317
  Receipt Date: 20080305
  Transmission Date: 20080703
  Serious: Yes (Disabling, Other)
  Sender: FDA-Public Use
  Company Number: PHBS2007JP20544

PATIENT
  Age: 66 Year
  Sex: Female
  Weight: 59 kg

DRUGS (33)
  1. GLEEVEC [Suspect]
     Indication: ACUTE LYMPHOCYTIC LEUKAEMIA
     Dosage: 600 MG/DAY
     Route: 048
     Dates: start: 20071031, end: 20071130
  2. GLEEVEC [Suspect]
     Dosage: 200 MG/DAY
     Route: 048
     Dates: start: 20071225
  3. PREDNISOLONE [Suspect]
     Indication: ACUTE LYMPHOCYTIC LEUKAEMIA
     Dosage: 60 MG/DAY
     Route: 048
     Dates: start: 20071031, end: 20071207
  4. PREDNISOLONE [Suspect]
     Dosage: 30 MG/DAY
     Route: 048
     Dates: start: 20071208, end: 20071211
  5. PREDNISOLONE [Suspect]
     Dosage: 15 MG/DAY
     Route: 048
     Dates: start: 20071212, end: 20071213
  6. PREDNISOLONE [Suspect]
     Dosage: 10 MG/DAY
     Route: 048
     Dates: start: 20071214, end: 20071215
  7. PREDNISOLONE [Suspect]
     Dosage: 5 MG/DAY
     Route: 048
     Dates: start: 20071216, end: 20071217
  8. PREDNISOLONE [Suspect]
     Dosage: 2.5 MG/DAY
     Route: 048
     Dates: start: 20071218, end: 20071219
  9. BONALON [Concomitant]
     Indication: OSTEOPOROSIS PROPHYLAXIS
     Dosage: 5MG/DAY
     Route: 048
     Dates: start: 20071031, end: 20071101
  10. GASTER D [Concomitant]
     Indication: GASTRITIS
     Dosage: 40 MG/DAY
     Route: 048
     Dates: start: 20071031, end: 20071111
  11. LAXOBERON [Concomitant]
     Indication: CONSTIPATION
     Dosage: 15 GTT
     Route: 048
     Dates: start: 20071031
  12. MAGNESIUM OXIDE [Concomitant]
     Indication: CONSTIPATION
     Dosage: 1.5 G/DAY
     Route: 048
     Dates: start: 20071031
  13. LENDORMIN [Concomitant]
     Indication: INSOMNIA
     Dosage: 0.25 MG/DAY
     Route: 048
     Dates: start: 20071031, end: 20071110
  14. ALDACTONE [Concomitant]
     Indication: OEDEMA
     Dosage: 25 MG/DAY
     Route: 048
     Dates: start: 20071109, end: 20071111
  15. OMEPRAL [Concomitant]
     Indication: GASTROINTESTINAL HAEMORRHAGE
     Dosage: 10 MG/DAY
     Route: 048
     Dates: start: 20071113
  16. OMEPRAL [Concomitant]
     Dosage: 20 MG/DAY
     Route: 048
  17. OMEPRAL [Concomitant]
     Dosage: 20 MG/DAY
     Route: 048
  18. LASIX [Concomitant]
     Indication: OEDEMA
     Dosage: 20 MG/DAY
     Route: 048
     Dates: start: 20071109, end: 20071127
  19. LASIX [Concomitant]
     Dosage: 40 MG/DAY
     Route: 048
  20. DEPAS [Concomitant]
     Indication: SLEEP DISORDER
     Route: 048
     Dates: start: 20071113, end: 20071126
  21. SLOW-K [Concomitant]
     Indication: HYPOKALAEMIA
     Dosage: 1800 MG/DAY
     Route: 048
     Dates: start: 20071124, end: 20071212
  22. SLOW-K [Concomitant]
     Dosage: 2400 MG/DAY
     Route: 048
  23. ULCERLMIN [Concomitant]
     Indication: GASTROINTESTINAL HAEMORRHAGE
     Dosage: 30 ML/DAY
     Route: 048
     Dates: start: 20071128
  24. DIOVAN [Concomitant]
     Indication: HYPERTENSION
     Dosage: 40 MG/DAY
     Route: 048
     Dates: start: 20071206, end: 20071211
  25. AZUNOL [Concomitant]
     Indication: ECZEMA
     Route: 061
     Dates: start: 20071115, end: 20071216
  26. ANTEBATE [Concomitant]
     Indication: ECZEMA
     Route: 061
     Dates: start: 20071110, end: 20071216
  27. LIDOMEX [Concomitant]
     Indication: ECZEMA
     Route: 061
     Dates: start: 20071109, end: 20071216
  28. AZUNOL [Concomitant]
     Indication: PROPHYLAXIS
     Route: 049
     Dates: start: 20071031
  29. UREPEARL [Concomitant]
     Indication: PRURITUS
     Route: 061
     Dates: start: 20071031
  30. BORRAZA [Concomitant]
     Indication: HAEMORRHOIDS
     Route: 061
     Dates: start: 20071128
  31. HYALEIN [Concomitant]
     Indication: CORNEAL DISORDER
     Route: 047
     Dates: start: 20071203
  32. ALLOPURINOL [Concomitant]
     Indication: HYPERURICAEMIA
     Dosage: 300 MG/DAY
     Route: 048
     Dates: start: 20071102, end: 20071111
  33. ALLOPURINOL [Concomitant]
     Dosage: 100 MG/DAY
     Route: 048

REACTIONS (11)
  - BLOOD BILIRUBIN INCREASED [None]
  - DISSEMINATED INTRAVASCULAR COAGULATION [None]
  - FIBRIN D DIMER INCREASED [None]
  - FIBRIN DECREASED [None]
  - FIBRIN DEGRADATION PRODUCTS INCREASED [None]
  - GASTRIC HAEMORRHAGE [None]
  - HAEMOGLOBIN DECREASED [None]
  - HAEMOLYTIC ANAEMIA [None]
  - MELAENA [None]
  - PLATELET COUNT DECREASED [None]
  - RETICULOCYTE COUNT INCREASED [None]
